FAERS Safety Report 4338922-2 (Version None)
Quarter: 2004Q2

REPORT INFORMATION
  Report Type: 
  Country: None (occurrence: None)
  Receive Date: 20040409
  Receipt Date: 20040329
  Transmission Date: 20050107
  Serious: Yes (Hospitalization)
  Sender: FDA-Public Use
  Company Number: CA-SHR-04-023322

PATIENT
  Age: 44 Year
  Sex: Female

DRUGS (3)
  1. BETASERON (INTERFERON BETA-1B)INJECTION 250 UG [Suspect]
     Indication: MULTIPLE SCLEROSIS RELAPSE
     Dosage: 8 MIU, EVERY 2D, SUBCUTANEOUS
     Route: 058
     Dates: start: 19940313
  2. VENTOLIN [Concomitant]
  3. FLOVENT [Concomitant]

REACTIONS (4)
  - BURNING SENSATION [None]
  - CHOLECYSTECTOMY [None]
  - INJECTION SITE REACTION [None]
  - MULTIPLE SCLEROSIS [None]
